FAERS Safety Report 20061409 (Version 3)
Quarter: 2022Q1

REPORT INFORMATION
  Report Type: Spontaneous
  Country: US (occurrence: US)
  Receive Date: 20211112
  Receipt Date: 20220114
  Transmission Date: 20220423
  Serious: No
  Sender: FDA-Public Use
  Company Number: US-PFIZER INC-202101375481

PATIENT
  Age: 8 Year
  Sex: Male
  Weight: 22.68 kg

DRUGS (2)
  1. GENOTROPIN [Suspect]
     Active Substance: SOMATROPIN
     Indication: Growth hormone deficiency
     Dosage: 1 MG, EVERY DAY (AT NIGHT)
     Dates: start: 20211007
  2. GENOTROPIN [Suspect]
     Active Substance: SOMATROPIN
     Dosage: 1 MG, EVERY DAY (AT NIGHT)
     Dates: start: 202110

REACTIONS (6)
  - Wrong technique in device usage process [Unknown]
  - Device use issue [Unknown]
  - Drug dose omission by device [Unknown]
  - Accidental exposure to product [Unknown]
  - Device leakage [Unknown]
  - Poor quality product administered [Unknown]

NARRATIVE: CASE EVENT DATE: 20211001
